FAERS Safety Report 12908001 (Version 2)
Quarter: 2017Q3

REPORT INFORMATION
  Report Type: Report from Study
  Country: None (occurrence: BR)
  Receive Date: 20161103
  Receipt Date: 20170720
  Transmission Date: 20171127
  Serious: Yes (Other)
  Sender: FDA-Public Use
  Company Number: BR-ABBVIE-16P-020-1771441-00

PATIENT
  Age: 54 Year
  Sex: Female
  Weight: 51 kg

DRUGS (3)
  1. SYNTHROID [Suspect]
     Active Substance: LEVOTHYROXINE SODIUM
     Indication: HYPOTHYROIDISM
     Dosage: DAILY DOSE: 25 MICROGRAM; MORNING (FASTING)
     Route: 048
     Dates: start: 2000
  2. INNELARE [Concomitant]
     Indication: OSTEOPENIA
     Dosage: DAILY DOSE: 1 ^CANDY^ A DAY
     Dates: end: 2017
  3. CALCITOTAL [Concomitant]
     Indication: OSTEOPENIA
     Dates: start: 2017

REACTIONS (6)
  - Vomiting [Recovered/Resolved]
  - Gastric haemorrhage [Recovered/Resolved]
  - Headache [Recovered/Resolved]
  - Osteopenia [Not Recovered/Not Resolved]
  - Intervertebral disc protrusion [Not Recovered/Not Resolved]
  - Spinal disorder [Recovering/Resolving]

NARRATIVE: CASE EVENT DATE: 2013
